FAERS Safety Report 12195466 (Version 1)
Quarter: 2016Q1

REPORT INFORMATION
  Report Type: Spontaneous
  Country: PT (occurrence: PT)
  Receive Date: 20160321
  Receipt Date: 20160321
  Transmission Date: 20160526
  Serious: Yes (Hospitalization)
  Sender: FDA-Public Use
  Company Number: PT-PFIZER INC-2016159303

PATIENT
  Age: 65 Year
  Sex: Male

DRUGS (4)
  1. CARDURA GITS [Suspect]
     Active Substance: DOXAZOSIN MESYLATE
     Indication: BENIGN PROSTATIC HYPERPLASIA
     Dosage: 4 MG, 1X/DAY
     Route: 048
  2. DOCE ALIVIO [Suspect]
     Active Substance: BELLADONNA LEAF\PHENOLPHTHALEIN
     Dosage: 1 DF, 1X/DAY
     Route: 048
  3. REUMOXICAN [Concomitant]
     Dosage: 1 DF, 1X/DAY
  4. LORENIN [Concomitant]
     Active Substance: LORAZEPAM
     Dosage: 2.5 MG, 2X/DAY

REACTIONS (3)
  - Rash papular [Recovering/Resolving]
  - Erythema multiforme [Recovering/Resolving]
  - Toxic skin eruption [Recovering/Resolving]

NARRATIVE: CASE EVENT DATE: 20100709
